FAERS Safety Report 15980874 (Version 1)
Quarter: 2019Q1

REPORT INFORMATION
  Report Type: Spontaneous
  Country: US (occurrence: US)
  Receive Date: 20190219
  Receipt Date: 20190219
  Transmission Date: 20190418
  Serious: Yes (Hospitalization, Other)
  Sender: FDA-Public Use
  Company Number: US-ELI_LILLY_AND_COMPANY-US201902003856

PATIENT
  Age: 82 Year
  Sex: Female

DRUGS (4)
  1. HUMALOG [Concomitant]
     Active Substance: INSULIN LISPRO
     Indication: TYPE 2 DIABETES MELLITUS
     Dosage: 18 U, DAILY (BEFORE LUNCH MEAL)
     Route: 065
  2. BASAGLAR [Suspect]
     Active Substance: INSULIN GLARGINE
     Indication: TYPE 2 DIABETES MELLITUS
     Dosage: 38 U, EACH EVENING (NIGHT
     Route: 058
     Dates: start: 201702
  3. METFORMIN [Concomitant]
     Active Substance: METFORMIN HYDROCHLORIDE
     Indication: TYPE 2 DIABETES MELLITUS
     Dosage: 250 MG, BID
  4. BASAGLAR [Suspect]
     Active Substance: INSULIN GLARGINE
     Dosage: 38 U, EACH EVENING (NIGHT
     Route: 058

REACTIONS (8)
  - Somnolence [Unknown]
  - Hypertension [Unknown]
  - Head injury [Unknown]
  - Hypoacusis [Unknown]
  - Dementia [Unknown]
  - Blood glucose increased [Unknown]
  - Fall [Unknown]
  - Fall [Unknown]

NARRATIVE: CASE EVENT DATE: 201702
